FAERS Safety Report 20240075 (Version 1)
Quarter: 2021Q4

REPORT INFORMATION
  Report Type: Spontaneous
  Country: None (occurrence: US)
  Receive Date: 20211228
  Receipt Date: 20211228
  Transmission Date: 20220303
  Serious: No
  Sender: FDA-Public Use
  Company Number: US-Matrixx Initiatives, Inc.-2123431

PATIENT
  Sex: Male

DRUGS (1)
  1. ZICAM NOS [Suspect]
     Active Substance: ECHINACEA ANGUSTIFOLIA\HOMEOPATHICS\ZINC ACETATE\ZINC GLUCONATE OR HOMEOPATHICS\ZINC ACETATE\ZINC GL

REACTIONS (4)
  - Anosmia [None]
  - Ageusia [None]
  - Sinonasal obstruction [None]
  - Sinusitis [None]
